FAERS Safety Report 4917369-1 (Version None)
Quarter: 2006Q1

REPORT INFORMATION
  Report Type: 
  Country: None (occurrence: None)
  Receive Date: 20060221
  Receipt Date: 20060210
  Transmission Date: 20060701
  Serious: Yes (Other)
  Sender: FDA-Public Use
  Company Number: US-GLAXOSMITHKLINE-A0593294A

PATIENT
  Age: 37 Year
  Sex: Female

DRUGS (4)
  1. LAMICTAL [Suspect]
     Indication: BIPOLAR DISORDER
     Dosage: 50MG TWICE PER DAY
     Route: 048
     Dates: start: 20050801
  2. ZOLOFT [Concomitant]
  3. CLONAZEPAM [Concomitant]
  4. ATIVAN [Concomitant]

REACTIONS (4)
  - BREAST CYST [None]
  - CYST REMOVAL [None]
  - PSEUDO LYMPHOMA [None]
  - VASCULITIS [None]
